FAERS Safety Report 5692374-9 (Version None)
Quarter: 2008Q2

REPORT INFORMATION
  Report Type: 
  Country: None (occurrence: None)
  Receive Date: 20080402
  Receipt Date: 20080328
  Transmission Date: 20081010
  Serious: Yes (Hospitalization)
  Sender: FDA-Public Use
  Company Number: FR-WYE-G01318008

PATIENT
  Sex: Male

DRUGS (12)
  1. PIPERACILLIN SODIUM AND TAZOBACTAM SODIUM [Suspect]
     Indication: STAPHYLOCOCCAL SEPSIS
     Dosage: UNKNOWN
     Route: 042
     Dates: start: 20080130, end: 20080208
  2. PIPERACILLIN SODIUM AND TAZOBACTAM SODIUM [Suspect]
     Indication: CATHETER SEPSIS
  3. VANCOMYCIN [Suspect]
     Indication: CATHETER SEPSIS
     Dosage: UNKNOWN
     Route: 042
     Dates: start: 20080131, end: 20080202
  4. VANCOMYCIN [Suspect]
     Indication: STAPHYLOCOCCAL SEPSIS
  5. OMEPRAZOLE [Concomitant]
     Dosage: UNKNOWN
     Route: 048
     Dates: start: 20080121, end: 20080217
  6. GRANOCYTE [Concomitant]
     Dates: start: 20080130
  7. CIFLOX [Concomitant]
     Dosage: UNKNOWN
     Route: 048
     Dates: start: 20080203, end: 20080216
  8. IDARUBICIN HCL [Concomitant]
     Indication: REFRACTORY ANAEMIA WITH AN EXCESS OF BLASTS
  9. ARACYTINE [Concomitant]
     Indication: REFRACTORY ANAEMIA WITH AN EXCESS OF BLASTS
  10. AMIKLIN [Suspect]
     Indication: STAPHYLOCOCCAL SEPSIS
     Dosage: UNKNOWN
     Route: 042
     Dates: start: 20080129, end: 20080202
  11. AMIKLIN [Suspect]
     Indication: CATHETER SEPSIS
  12. STILNOX [Concomitant]
     Dosage: UNKNOWN
     Route: 048
     Dates: start: 20080202, end: 20080212

REACTIONS (3)
  - HAEMATURIA [None]
  - RENAL FAILURE ACUTE [None]
  - RENAL TUBULAR NECROSIS [None]
